FAERS Safety Report 6007429-9 (Version None)
Quarter: 2008Q4

REPORT INFORMATION
  Report Type: 
  Country: None (occurrence: None)
  Receive Date: 20081217
  Receipt Date: 20080417
  Transmission Date: 20090506
  Serious: No
  Sender: FDA-Public Use
  Company Number: US-ASTRAZENECA-2008UW07823

PATIENT
  Age: 83 Year
  Sex: Female
  Weight: 74.8 kg

DRUGS (4)
  1. CRESTOR [Suspect]
     Indication: BLOOD CHOLESTEROL INCREASED
     Route: 048
     Dates: start: 20070101
  2. DIOVAN [Concomitant]
  3. SOTALOL HCL [Concomitant]
  4. FOSAMAX [Concomitant]

REACTIONS (1)
  - BACK PAIN [None]
